FAERS Safety Report 4565566-X (Version None)
Quarter: 2005Q1

REPORT INFORMATION
  Report Type: 
  Country: None (occurrence: None)
  Receive Date: 20050125
  Receipt Date: 20050125
  Transmission Date: 20050727
  Serious: Yes (Life-Threatening)
  Sender: FDA-Public Use
  Company Number: None

PATIENT
  Age: 47 Year
  Sex: Female
  Weight: 65.7716 kg

DRUGS (1)
  1. ROBITUSSIN CF [Suspect]

REACTIONS (8)
  - ASTHENIA [None]
  - COLD SWEAT [None]
  - COUGH [None]
  - DIZZINESS [None]
  - DYSPNOEA [None]
  - ELECTROCARDIOGRAM ABNORMAL [None]
  - HEART RATE INCREASED [None]
  - MORBID THOUGHTS [None]
